FAERS Safety Report 6244029-X (Version None)
Quarter: 2009Q2

REPORT INFORMATION
  Report Type: 
  Country: None (occurrence: None)
  Receive Date: 20090623
  Receipt Date: 20090615
  Transmission Date: 20091009
  Serious: Yes (Death, Life-Threatening, Hospitalization)
  Sender: FDA-Public Use
  Company Number: 2009007329

PATIENT
  Age: 61 Year
  Sex: Male

DRUGS (4)
  1. TREANDA [Suspect]
     Dosage: (100 MG/M2, INTRAVENOUS (NOT OTHERWISE SPECIFIED)
     Route: 042
  2. RITUXIMAB (RITUXIMAB) [Suspect]
     Dosage: (375 MG/M2, INTRAVENOUS (NOT OTHERWISE SPECIFIED)
     Route: 042
  3. FLUDARABINE PHOSPHATE [Suspect]
     Dosage: (25 MG/M2, INTRAVENOUS (NOT OTHERWISE SPECIFIED)
     Route: 042
  4. CYCLOPHOSPHAMIDE [Suspect]
     Dosage: (250 MG/M2, 250 MG/M2, INTRAVENOUS (NOT OTHERWISE SPECIFIED)
     Route: 042

REACTIONS (3)
  - NEUTROPENIC COLITIS [None]
  - RENAL FAILURE ACUTE [None]
  - SEPSIS [None]
